FAERS Safety Report 11232468 (Version 2)
Quarter: 2015Q3

REPORT INFORMATION
  Report Type: Spontaneous
  Country: US (occurrence: US)
  Receive Date: 20150701
  Receipt Date: 20150708
  Transmission Date: 20151125
  Serious: Yes (Other)
  Sender: FDA-Public Use
  Company Number: US-PFIZER INC-2015218839

PATIENT
  Age: 72 Year
  Sex: Female
  Weight: 54.2 kg

DRUGS (2)
  1. METHIMAZOLE. [Suspect]
     Active Substance: METHIMAZOLE
     Dosage: 10 MG, UNK
  2. IMODIUM [Concomitant]
     Active Substance: LOPERAMIDE HYDROCHLORIDE
     Dosage: UNK

REACTIONS (19)
  - Hypersensitivity [Unknown]
  - Nausea [Unknown]
  - Pruritus generalised [Unknown]
  - Gastrointestinal pain [Unknown]
  - Hyperthyroidism [Unknown]
  - Headache [Unknown]
  - Alopecia [Unknown]
  - Malaise [Unknown]
  - Dizziness [Unknown]
  - Drug ineffective [Unknown]
  - Atrial fibrillation [Unknown]
  - Endocrine ophthalmopathy [Unknown]
  - Vomiting [Unknown]
  - Product substitution issue [Unknown]
  - Fatigue [Unknown]
  - Hypothyroidism [Unknown]
  - Abdominal pain [Unknown]
  - Arthralgia [Unknown]
  - Diarrhoea [Not Recovered/Not Resolved]
